FAERS Safety Report 7498684-7 (Version None)
Quarter: 2011Q2

REPORT INFORMATION
  Report Type: 
  Country: None (occurrence: None)
  Receive Date: 20110524
  Receipt Date: 20110509
  Transmission Date: 20111010
  Serious: Yes (Other)
  Sender: FDA-Public Use
  Company Number: CA-JNJFOC-20110504496

PATIENT
  Age: 46 Year

DRUGS (1)
  1. REMICADE [Suspect]
     Indication: PRODUCT USED FOR UNKNOWN INDICATION
     Route: 042

REACTIONS (6)
  - DYSPNOEA [None]
  - NAUSEA [None]
  - IRITIS [None]
  - HEADACHE [None]
  - SYNCOPE [None]
  - UVEITIS [None]
